FAERS Safety Report 6217133-X (Version None)
Quarter: 2009Q2

REPORT INFORMATION
  Report Type: 
  Country: None (occurrence: None)
  Receive Date: 20090606
  Receipt Date: 20090525
  Transmission Date: 20091009
  Serious: Yes (Other)
  Sender: FDA-Public Use
  Company Number: TW-PFIZER INC-2009220088

PATIENT
  Age: 52 Year

DRUGS (1)
  1. NICOTINE [Suspect]
     Indication: SMOKING CESSATION THERAPY
     Dosage: THREE CARTRIDGES A DAY

REACTIONS (1)
  - HYPERTENSION [None]
